FAERS Safety Report 11801171 (Version 3)
Quarter: 2015Q4

REPORT INFORMATION
  Report Type: Spontaneous
  Country: FR (occurrence: FR)
  Receive Date: 20151204
  Receipt Date: 20151220
  Transmission Date: 20160305
  Serious: Yes (Hospitalization)
  Sender: FDA-Public Use
  Company Number: FR-ROCHE-1672459

PATIENT
  Age: 58 Year
  Sex: Male

DRUGS (6)
  1. MABTHERA [Suspect]
     Active Substance: RITUXIMAB
     Indication: CHRONIC LYMPHOCYTIC LEUKAEMIA
     Dosage: DOSE OF RITUXIMANB RECEIVED ON: 02/DEC/2013, 30/DEC/2013, 27/JAN/2014, 24/FEB/2014,
     Route: 042
     Dates: start: 20131007, end: 20140224
  2. GRANOCYTE [Suspect]
     Active Substance: LENOGRASTIM
     Indication: PRODUCT USED FOR UNKNOWN INDICATION
     Dosage: 34 MIU, POWDER AND SOLVENT IN PREFILLED SYRINGE FOR INJECTABLE OR DRIP SOLUTION.?RECEIVED LENOGRASTI
     Route: 058
     Dates: start: 20131017, end: 20140310
  3. ENDOXAN [Suspect]
     Active Substance: CYCLOPHOSPHAMIDE
     Indication: CHRONIC LYMPHOCYTIC LEUKAEMIA
     Dosage: DOSE OF FLUDARABINE PHOSPHATE RECEIVED ON: 02/DEC/2013, 30/DEC/2013, 27/JAN/2014, 24/FEB/2014,
     Route: 048
     Dates: start: 20131008, end: 20140224
  4. ZELITREX [Suspect]
     Active Substance: VALACYCLOVIR HYDROCHLORIDE
     Indication: PROPHYLAXIS
     Route: 048
     Dates: start: 20131007, end: 20140326
  5. FLUDARABINE PHOSPHATE. [Suspect]
     Active Substance: FLUDARABINE PHOSPHATE
     Indication: CHRONIC LYMPHOCYTIC LEUKAEMIA
     Dosage: DOSE OF FLUDARABINE PHOSPHATE RECEIVED ON: 02/DEC/2013, 30/DEC/2013, 27/JAN/2014, 24/FEB/2014,
     Route: 048
     Dates: start: 20131008, end: 20140224
  6. BACTRIM [Suspect]
     Active Substance: SULFAMETHOXAZOLE\TRIMETHOPRIM
     Indication: PROPHYLAXIS
     Route: 048
     Dates: start: 20131007, end: 20140328

REACTIONS (2)
  - Myelodysplastic syndrome [Not Recovered/Not Resolved]
  - Pancytopenia [Not Recovered/Not Resolved]

NARRATIVE: CASE EVENT DATE: 201401
